FAERS Safety Report 9038886 (Version 1)
Quarter: 2013Q1

REPORT INFORMATION
  Report Type: Report from Study
  Country: KR (occurrence: KR)
  Receive Date: 20130129
  Receipt Date: 20130129
  Transmission Date: 20140127
  Serious: Yes (Life-Threatening)
  Sender: FDA-Public Use
  Company Number: KR-NAPPMUNDI-GBR-2012-0012990

PATIENT
  Sex: Male

DRUGS (10)
  1. OXY CR [Suspect]
     Indication: CANCER PAIN
     Dosage: 90 MG, DAILY
     Route: 048
     Dates: start: 20101223
  2. OXY IR [Suspect]
     Indication: CANCER PAIN
     Dosage: 20 MG, DAILY
     Route: 048
     Dates: start: 20090730
  3. STILNOX [Concomitant]
     Dosage: 13 MG, DAILY
     Dates: start: 20110216
  4. ANTIDEPRESSANTS [Concomitant]
     Dosage: 38 MG, DAILY
     Dates: start: 20110601
  5. LACTULOSE [Concomitant]
     Dosage: 30 ML, DAILY
     Dates: start: 20100702
  6. BISACODYL W/DOCUSATE [Concomitant]
     Dosage: 1 TABLET, DAILY
     Dates: start: 20101223
  7. MAGMIL [Concomitant]
     Dosage: 2000 MG, DAILY
  8. MAGNESIUM OXIDE [Concomitant]
     Dosage: 2000 MG, DAILY
     Dates: start: 20100113
  9. DUPHALAC                           /00163401/ [Concomitant]
     Dosage: 30 CC
  10. DULCOLAX                           /00064401/ [Concomitant]
     Dosage: 5 MG, UNK

REACTIONS (3)
  - Delirium [Unknown]
  - Constipation [Unknown]
  - Asthenia [Unknown]
